FAERS Safety Report 20536150 (Version 1)
Quarter: 2022Q1

REPORT INFORMATION
  Report Type: Report from Study
  Country: FR (occurrence: FR)
  Receive Date: 20220302
  Receipt Date: 20220302
  Transmission Date: 20220423
  Serious: Yes (Hospitalization)
  Sender: FDA-Public Use
  Company Number: FR-LEO Pharma-340587

PATIENT
  Age: 30 Year
  Sex: Male
  Weight: 77 kg

DRUGS (4)
  1. TRALOKINUMAB [Suspect]
     Active Substance: TRALOKINUMAB
     Indication: Dermatitis atopic
     Dosage: TREATMENT END DATE: END OF OCT-2021
     Route: 058
     Dates: start: 20210813, end: 202110
  2. DEVICE [Suspect]
     Active Substance: DEVICE
     Indication: Dermatitis atopic
  3. CORTICOSTEROID NOS [Suspect]
     Active Substance: CORTICOSTEROID NOS
     Indication: Dermatitis atopic
     Dosage: DOSAGE: ASKED BUT UNKNOWN
     Route: 061
  4. ALBUTEROL [Concomitant]
     Active Substance: ALBUTEROL
     Indication: Asthma
     Dosage: DOSAGE : ASKED BUT UNKNOWN, LOT NO: UNKNOWN

REACTIONS (4)
  - Eczema herpeticum [Recovered/Resolved]
  - Lymphopenia [Unknown]
  - Conjunctivitis [Unknown]
  - Blepharitis [Unknown]
